FAERS Safety Report 15966439 (Version 1)
Quarter: 2019Q1

REPORT INFORMATION
  Report Type: Spontaneous
  Country: US (occurrence: US)
  Receive Date: 20190214
  Receipt Date: 20190214
  Transmission Date: 20190418
  Serious: Yes (Hospitalization, Disabling, Other)
  Sender: FDA-Public Use
  Company Number: None

PATIENT
  Age: 66 Year
  Sex: Female
  Weight: 58.5 kg

DRUGS (1)
  1. MEFLOQUINE [Suspect]
     Active Substance: MEFLOQUINE
     Indication: MALARIA PROPHYLAXIS
     Dosage: ?          QUANTITY:1 TABLET(S);OTHER FREQUENCY:WKLY STRT 2 WK BE;?
     Route: 048
     Dates: start: 20180927, end: 20181010

REACTIONS (5)
  - Hallucination, visual [None]
  - Anxiety [None]
  - Persecutory delusion [None]
  - Hallucination, auditory [None]
  - Suicide attempt [None]

NARRATIVE: CASE EVENT DATE: 20181012
